FAERS Safety Report 23686018 (Version 3)
Quarter: 2024Q2

REPORT INFORMATION
  Report Type: Report from Study
  Country: US (occurrence: US)
  Receive Date: 20240329
  Receipt Date: 20240424
  Transmission Date: 20240716
  Serious: Yes (Hospitalization)
  Sender: FDA-Public Use
  Company Number: US-ARGENX-2024-ARGX-US001469

PATIENT

DRUGS (10)
  1. VYVGART [Suspect]
     Active Substance: EFGARTIGIMOD ALFA-FCAB
     Indication: Myasthenia gravis
     Dosage: 1000 MG, 1/WEEK FOR 4 WEEKS, CYCLE REPEATS EVERY 42 DAYS
     Route: 042
     Dates: start: 20221018
  2. VYVGART [Suspect]
     Active Substance: EFGARTIGIMOD ALFA-FCAB
     Indication: Osteoporosis
     Dosage: UNK
     Route: 042
     Dates: start: 20221027
  3. VYVGART [Suspect]
     Active Substance: EFGARTIGIMOD ALFA-FCAB
     Dosage: 10 MG/KG (986 MG) ONCE WEEKLY FOR 4 WEEKS AND REPEAT CYCLE WITH NO BREAK BETWEEN CYCLES, SOL 400MG 2
     Route: 042
  4. MOXIFLOXACIN;PREDNISOLONE [Concomitant]
     Indication: Product used for unknown indication
     Dosage: UNK
     Route: 065
  5. ADVAIR HFA [Concomitant]
     Active Substance: FLUTICASONE PROPIONATE\SALMETEROL XINAFOATE
     Indication: Product used for unknown indication
     Dosage: ADVAIR DISKU AEP 100-50MC
     Route: 065
  6. GABAPENTIN [Concomitant]
     Active Substance: GABAPENTIN
     Indication: Product used for unknown indication
     Dosage: 100 MG, CAP
     Route: 065
  7. LATANOPROST [Concomitant]
     Active Substance: LATANOPROST
     Indication: Product used for unknown indication
     Dosage: SOL 0.005 %
     Route: 065
  8. LOSARTAN POTASSIUM [Concomitant]
     Active Substance: LOSARTAN POTASSIUM
     Indication: Product used for unknown indication
     Dosage: 100 MG TAB
     Route: 065
  9. MESTINON [Concomitant]
     Active Substance: PYRIDOSTIGMINE BROMIDE
     Indication: Product used for unknown indication
     Dosage: 60 MG, TAB
     Route: 065
  10. PREDNISONE [Concomitant]
     Active Substance: PREDNISONE
     Indication: Product used for unknown indication
     Dosage: 20 MG, TAB
     Route: 065

REACTIONS (6)
  - Myasthenia gravis [Not Recovered/Not Resolved]
  - Hospitalisation [Unknown]
  - Mastication disorder [Unknown]
  - Off label use [Unknown]
  - Dyspnoea [Unknown]
  - Drug ineffective [Unknown]

NARRATIVE: CASE EVENT DATE: 20240201
